FAERS Safety Report 11181278 (Version 1)
Quarter: 2015Q2

REPORT INFORMATION
  Report Type: Spontaneous
  Country: US (occurrence: None)
  Receive Date: 20150610
  Receipt Date: 20150610
  Transmission Date: 20150821
  Serious: Yes (Hospitalization)
  Sender: FDA-Public Use
  Company Number: None

PATIENT
  Age: 60 Year
  Sex: Female
  Weight: 74.84 kg

DRUGS (12)
  1. PREDNISONE. [Concomitant]
     Active Substance: PREDNISONE
  2. XARELTO [Concomitant]
     Active Substance: RIVAROXABAN
  3. ALBUTEROL INHALER [Concomitant]
     Active Substance: ALBUTEROL
  4. PEPCID [Concomitant]
     Active Substance: FAMOTIDINE
  5. CELTRATE [Concomitant]
  6. SYMBICORT [Concomitant]
     Active Substance: BUDESONIDE\FORMOTEROL FUMARATE DIHYDRATE
  7. SINGULAIR [Concomitant]
     Active Substance: MONTELUKAST SODIUM
  8. ALBUTEROL AND IPRAPROPIUM NEBULIZER [Concomitant]
  9. QVAR [Suspect]
     Active Substance: BECLOMETHASONE DIPROPIONATE
     Indication: RESPIRATORY DISORDER
     Route: 055
     Dates: start: 20140617, end: 20140617
  10. FLONASE [Concomitant]
     Active Substance: FLUTICASONE PROPIONATE
  11. CENTRUM LIQUID  VITAMINS [Concomitant]
  12. ALLEGRA [Concomitant]
     Active Substance: FEXOFENADINE HYDROCHLORIDE

REACTIONS (2)
  - Dyspnoea [None]
  - Throat tightness [None]

NARRATIVE: CASE EVENT DATE: 20140617
